FAERS Safety Report 8354818-3 (Version None)
Quarter: 2012Q2

REPORT INFORMATION
  Report Type: 
  Country: None (occurrence: None)
  Receive Date: 20120511
  Receipt Date: 20120501
  Transmission Date: 20120825
  Serious: Yes (Hospitalization)
  Sender: FDA-Public Use
  Company Number: US-ROCHE-1004338

PATIENT
  Sex: Female
  Weight: 80.812 kg

DRUGS (7)
  1. XOLAIR [Suspect]
     Indication: ASTHMA
     Route: 058
     Dates: start: 20110913
  2. SINGULAIR [Concomitant]
  3. TIOTROPIUM BROMIDE [Concomitant]
  4. ALBUTEROL [Concomitant]
  5. XOLAIR [Suspect]
     Dates: start: 20111116
  6. EPINEPHRINE HYDROCHLORIDE [Concomitant]
     Indication: ANAPHYLACTIC REACTION
     Dosage: 0.3 MG/0.3 ML
  7. ENTOCORT EC [Concomitant]
     Dosage: 2 PUFF ORALLY, 160-4.5 MCG/ACT

REACTIONS (1)
  - RASH [None]
